FAERS Safety Report 15771366 (Version 1)
Quarter: 2018Q4

REPORT INFORMATION
  Report Type: Spontaneous
  Country: PT (occurrence: PT)
  Receive Date: 20181228
  Receipt Date: 20181228
  Transmission Date: 20190205
  Serious: Yes (Other)
  Sender: FDA-Public Use
  Company Number: PT-MYLANLABS-2018M1032614

PATIENT
  Age: 77 Year
  Sex: Female

DRUGS (6)
  1. ETHAMBUTOL [Concomitant]
     Active Substance: ETHAMBUTOL HYDROCHLORIDE
     Indication: LUNG INFECTION
  2. RIFAMYCINE                         /00047701/ [Concomitant]
     Active Substance: RIFAMYCIN
     Indication: ATYPICAL MYCOBACTERIAL INFECTION
     Dosage: 600 MG, QD
  3. RIFAMYCINE                         /00047701/ [Concomitant]
     Active Substance: RIFAMYCIN
     Indication: LUNG INFECTION
  4. CIPROFLOXACIN. [Suspect]
     Active Substance: CIPROFLOXACIN
     Indication: ATYPICAL MYCOBACTERIAL INFECTION
     Dosage: 750 MG, BID
  5. CIPROFLOXACIN. [Suspect]
     Active Substance: CIPROFLOXACIN
     Indication: LUNG INFECTION
  6. ETHAMBUTOL [Concomitant]
     Active Substance: ETHAMBUTOL HYDROCHLORIDE
     Indication: ATYPICAL MYCOBACTERIAL INFECTION
     Dosage: 1200 MG, QD (18 MG/KG/DAY)

REACTIONS (5)
  - Gastrointestinal toxicity [Unknown]
  - Hypoaesthesia [Recovering/Resolving]
  - Axonal neuropathy [Recovering/Resolving]
  - Visual acuity reduced [Recovering/Resolving]
  - Visual impairment [Unknown]
